FAERS Safety Report 6734981-8 (Version None)
Quarter: 2010Q2

REPORT INFORMATION
  Report Type: 
  Country: None (occurrence: None)
  Receive Date: 20100521
  Receipt Date: 20100511
  Transmission Date: 20101027
  Serious: Yes (Other)
  Sender: FDA-Public Use
  Company Number: BR-PFIZER INC-2009268826

PATIENT
  Age: 27 Year
  Sex: Female
  Weight: 73 kg

DRUGS (1)
  1. DEPO-PROVERA [Suspect]
     Indication: CONTRACEPTION
     Dosage: 150 MG, EVERY 3 MONTHS
     Route: 030
     Dates: start: 20060301, end: 20090901

REACTIONS (6)
  - AMENORRHOEA [None]
  - FLUID RETENTION [None]
  - MENORRHAGIA [None]
  - METRORRHAGIA [None]
  - PHLEBITIS [None]
  - WEIGHT INCREASED [None]
